FAERS Safety Report 21397238 (Version 1)
Quarter: 2022Q3

REPORT INFORMATION
  Report Type: Spontaneous
  Country: US (occurrence: None)
  Receive Date: 20220929
  Receipt Date: 20220929
  Transmission Date: 20221026
  Serious: Yes (Hospitalization)
  Sender: FDA-Public Use
  Company Number: None

PATIENT
  Sex: Female

DRUGS (24)
  1. COSENTYX [Suspect]
     Active Substance: SECUKINUMAB
     Indication: Psoriatic arthropathy
     Route: 058
     Dates: start: 20190201
  2. BUPROPION TAB [Concomitant]
  3. CIPROFLOXACN TAB [Concomitant]
  4. COLESTIPOL TAB [Concomitant]
  5. CONTRAVE [Concomitant]
     Active Substance: BUPROPION HYDROCHLORIDE\NALTREXONE HYDROCHLORIDE
  6. DIVIGEL [Concomitant]
  7. FUROSEMIDE TAB [Concomitant]
  8. GABAPENTIN [Concomitant]
     Active Substance: GABAPENTIN
  9. HYDROCHLOROT CAP [Concomitant]
  10. HYDROXYZINE HYDROCHLORIDE [Concomitant]
     Active Substance: HYDROXYZINE HYDROCHLORIDE
  11. LEFLUOMIDE TAB [Concomitant]
  12. LIDOCAINE SOL [Concomitant]
  13. LOSARTAN POT TAB [Concomitant]
  14. NALTREXONE TAB [Concomitant]
  15. PANTOPRAZOLE TAB [Concomitant]
  16. POT CHLORIDE TAB [Concomitant]
  17. POT CITRATE TAB [Concomitant]
  18. PREDNISONE [Concomitant]
     Active Substance: PREDNISONE
  19. SUCRALFATE TAB [Concomitant]
  20. VITAMIN D CAP [Concomitant]
  21. VYVANSE CAP [Concomitant]
  22. VYVANSE CAP [Concomitant]
  23. VYVANSE CAP [Concomitant]
  24. VYVANSE CAP [Concomitant]

REACTIONS (3)
  - Tendon operation [None]
  - Elbow operation [None]
  - Therapy interrupted [None]
